FAERS Safety Report 10058647 (Version 1)
Quarter: 2014Q2

REPORT INFORMATION
  Report Type: Spontaneous
  Country: CA (occurrence: CA)
  Receive Date: 20140404
  Receipt Date: 20140404
  Transmission Date: 20141212
  Serious: Yes (Other)
  Sender: FDA-Public Use
  Company Number: CA-PFIZER INC-2014093956

PATIENT
  Age: 57 Year
  Sex: Female

DRUGS (7)
  1. SERTRALINE HCL [Suspect]
     Dosage: UNK
     Route: 048
  2. DILANTIN [Suspect]
     Dosage: UNK
     Route: 065
  3. ATIVAN [Concomitant]
     Dosage: UNK
  4. DEXAMETHASONE [Concomitant]
     Dosage: UNK
  5. RANITIDINE [Concomitant]
     Dosage: UNK
  6. SEPTRA [Concomitant]
     Dosage: UNK
     Route: 042
  7. VALPROIC ACID [Concomitant]
     Dosage: UNK

REACTIONS (2)
  - Blister [Recovered/Resolved]
  - Rash [Recovered/Resolved]
